FAERS Safety Report 7345273-0 (Version None)
Quarter: 2011Q1

REPORT INFORMATION
  Report Type: 
  Country: None (occurrence: None)
  Receive Date: 20110310
  Receipt Date: 20110301
  Transmission Date: 20110831
  Serious: Yes (Other)
  Sender: FDA-Public Use
  Company Number: US-ELI_LILLY_AND_COMPANY-US201103000979

PATIENT
  Age: 26 Year
  Sex: Male

DRUGS (1)
  1. CYMBALTA [Suspect]
     Indication: MAJOR DEPRESSION
     Dosage: 60 MG, UNK

REACTIONS (9)
  - VISION BLURRED [None]
  - HALLUCINATION [None]
  - ARRHYTHMIA [None]
  - BRUXISM [None]
  - PARANOIA [None]
  - MANIA [None]
  - OEDEMA PERIPHERAL [None]
  - PAIN IN EXTREMITY [None]
  - DYSKINESIA [None]
